FAERS Safety Report 7681857-8 (Version None)
Quarter: 2011Q3

REPORT INFORMATION
  Report Type: 
  Country: None (occurrence: None)
  Receive Date: 20110813
  Receipt Date: 20110808
  Transmission Date: 20111222
  Serious: Yes (Other)
  Sender: FDA-Public Use
  Company Number: US-CEPHALON-2009010590

PATIENT
  Sex: Female

DRUGS (2)
  1. PROVIGIL [Suspect]
     Indication: MULTIPLE SCLEROSIS
  2. PROVIGIL [Suspect]
     Indication: FATIGUE
     Route: 048

REACTIONS (1)
  - MITRAL VALVE PROLAPSE [None]
